FAERS Safety Report 6057900-9 (Version None)
Quarter: 2009Q1

REPORT INFORMATION
  Report Type: 
  Country: None (occurrence: None)
  Receive Date: 20090129
  Receipt Date: 20090122
  Transmission Date: 20090719
  Serious: Yes (Life-Threatening)
  Sender: FDA-Public Use
  Company Number: JP-ABBOTT-08P-087-0479228-00

PATIENT
  Age: 80 Year
  Sex: Male

DRUGS (7)
  1. LEUPROLIDE ACETATE [Suspect]
     Indication: PROSTATE CANCER
     Route: 058
     Dates: start: 20070706, end: 20080829
  2. LEUPROLIDE ACETATE [Suspect]
     Dates: start: 20070413, end: 20070608
  3. CASODEX [Concomitant]
     Indication: PROSTATE CANCER
     Route: 048
     Dates: start: 20070330, end: 20080926
  4. ALLOPURINOL [Concomitant]
     Indication: HYPERURICAEMIA
     Route: 048
     Dates: start: 20070101, end: 20080901
  5. WARFARIN POTASSIUM [Concomitant]
     Indication: THROMBOSIS PROPHYLAXIS
     Route: 048
     Dates: start: 20070101, end: 20080901
  6. VERAPAMIL HYDROCHLOIRDE [Concomitant]
     Indication: ANGINA PECTORIS
     Route: 048
     Dates: start: 20070101, end: 20080901
  7. MYSLEE [Concomitant]
     Indication: INSOMNIA
     Route: 048
     Dates: start: 20060101, end: 20080901

REACTIONS (1)
  - INTERSTITIAL LUNG DISEASE [None]
